FAERS Safety Report 4824718-1 (Version None)
Quarter: 2005Q4

REPORT INFORMATION
  Report Type: 
  Country: None (occurrence: None)
  Receive Date: 20051108
  Receipt Date: 20051025
  Transmission Date: 20060501
  Serious: Yes (Other)
  Sender: FDA-Public Use
  Company Number: GBS051018692

PATIENT
  Age: 8 Year
  Sex: Male
  Weight: 27 kg

DRUGS (3)
  1. STRATTERA [Suspect]
     Indication: ATTENTION DEFICIT/HYPERACTIVITY DISORDER
     Dosage: 18 MG
     Dates: start: 20050727
  2. CONCERTA [Concomitant]
  3. EQUASYM (METHYLPHENIDATE HYDROCHLORIDE) [Concomitant]

REACTIONS (6)
  - CRYING [None]
  - EMOTIONAL DISORDER [None]
  - LETHARGY [None]
  - SELF ESTEEM DECREASED [None]
  - SELF-INJURIOUS IDEATION [None]
  - SUICIDAL IDEATION [None]
